FAERS Safety Report 7959494-7 (Version None)
Quarter: 2011Q4

REPORT INFORMATION
  Report Type: 
  Country: None (occurrence: None)
  Receive Date: 20111206
  Receipt Date: 20111129
  Transmission Date: 20120403
  Serious: No
  Sender: FDA-Public Use
  Company Number: US-PFIZER INC-2011291026

PATIENT
  Sex: Male

DRUGS (1)
  1. FLAGYL [Suspect]
     Dosage: 500 MG

REACTIONS (4)
  - PAROSMIA [None]
  - DEPRESSION [None]
  - NAUSEA [None]
  - DISCOMFORT [None]
